FAERS Safety Report 6810801-8 (Version None)
Quarter: 2010Q2

REPORT INFORMATION
  Report Type: 
  Country: None (occurrence: None)
  Receive Date: 20100630
  Receipt Date: 20080220
  Transmission Date: 20101027
  Serious: No
  Sender: FDA-Public Use
  Company Number: US-PFIZER INC-2008016869

PATIENT
  Sex: Female
  Weight: 90.9 kg

DRUGS (7)
  1. NICOTROL [Suspect]
     Indication: SMOKING CESSATION THERAPY
     Dates: start: 20070601, end: 20070601
  2. SEROQUEL [Concomitant]
     Route: 048
  3. KLONOPIN [Concomitant]
     Route: 048
  4. CELEXA [Concomitant]
     Route: 048
  5. BUSPIRONE HCL [Concomitant]
     Route: 048
  6. EFFEXOR [Concomitant]
     Route: 048
  7. DRUG, UNSPECIFIED [Concomitant]
     Route: 048

REACTIONS (3)
  - COUGH [None]
  - RETCHING [None]
  - VOMITING [None]
